FAERS Safety Report 9264502 (Version 2)
Quarter: 2013Q2

REPORT INFORMATION
  Report Type: Report from Study
  Country: JP (occurrence: JP)
  Receive Date: 20130501
  Receipt Date: 20130612
  Transmission Date: 20140414
  Serious: Yes (Other)
  Sender: FDA-Public Use
  Company Number: JP-ROCHE-1213813

PATIENT
  Age: 47 Year
  Sex: Male
  Weight: 60.06 kg

DRUGS (7)
  1. OMALIZUMAB [Suspect]
     Indication: ASTHMA
     Route: 058
     Dates: start: 20100816, end: 20130304
  2. ADOAIR [Concomitant]
     Route: 065
     Dates: start: 20100324
  3. ONON [Concomitant]
     Route: 065
     Dates: start: 20100324
  4. ALESION [Concomitant]
     Route: 065
     Dates: start: 20100324
  5. THEOLONG [Concomitant]
     Route: 065
     Dates: start: 20100324, end: 20101101
  6. PREDONINE [Concomitant]
     Route: 065
     Dates: start: 20100324, end: 20100328
  7. SULTANOL [Concomitant]
     Route: 065
     Dates: start: 20100324

REACTIONS (2)
  - Lymphoma [Unknown]
  - Metastasis [Unknown]
